FAERS Safety Report 19835938 (Version 1)
Quarter: 2021Q3

REPORT INFORMATION
  Report Type: Spontaneous
  Country: ES (occurrence: ES)
  Receive Date: 20210915
  Receipt Date: 20210915
  Transmission Date: 20211014
  Serious: Yes (Hospitalization)
  Sender: FDA-Public Use
  Company Number: ES-MYLANLABS-2021M1061587

PATIENT
  Age: 87 Year
  Sex: Male

DRUGS (2)
  1. AMIODARONA                         /00133101/ [Suspect]
     Active Substance: AMIODARONE
     Indication: ATRIAL FLUTTER
     Dosage: 1?0?0 DE LUNES A VIERNES
     Route: 048
     Dates: start: 20201216, end: 20210119
  2. BISOPROLOL [Suspect]
     Active Substance: BISOPROLOL
     Indication: ATRIAL FLUTTER
     Dosage: UNK UNK, QD
     Route: 048
     Dates: start: 20201216

REACTIONS (1)
  - Atrioventricular block complete [Recovered/Resolved]

NARRATIVE: CASE EVENT DATE: 20210119
